FAERS Safety Report 8329833-6 (Version None)
Quarter: 2012Q2

REPORT INFORMATION
  Report Type: 
  Country: None (occurrence: None)
  Receive Date: 20120502
  Receipt Date: 20120424
  Transmission Date: 20120825
  Serious: Yes (Other)
  Sender: FDA-Public Use
  Company Number: CH-B.I. PHARMACEUTICALS,INC./RIDGEFIELD-2012-AP-00348SI

PATIENT
  Age: 69 Year
  Sex: Male

DRUGS (10)
  1. MOTILIUM [Concomitant]
  2. TAMSULOSIN HCL [Concomitant]
  3. TENORMIN [Concomitant]
  4. PRAMIPEXOLE DIHYDROCHLORIDE [Suspect]
     Dosage: 0.75 MG
     Route: 048
     Dates: start: 20120228
  5. SINTROM [Concomitant]
  6. CORDARON [Concomitant]
  7. PRAMIPEXOLE DIHYDROCHLORIDE [Suspect]
     Indication: RESTLESS LEGS SYNDROME
     Dosage: 1.5 MG
     Route: 048
     Dates: start: 20080128, end: 20120228
  8. ASPIRIN [Concomitant]
  9. PRAVALOTIN [Concomitant]
  10. PERINDOPRIL ERBUMINE [Concomitant]

REACTIONS (2)
  - IMPULSE-CONTROL DISORDER [None]
  - PATHOLOGICAL GAMBLING [None]
